FAERS Safety Report 4324045-5 (Version None)
Quarter: 2004Q1

REPORT INFORMATION
  Report Type: 
  Country: None (occurrence: None)
  Receive Date: 20040326
  Receipt Date: 20031211
  Transmission Date: 20041129
  Serious: No
  Sender: FDA-Public Use
  Company Number: US-GLAXOSMITHKLINE-A0442790A

PATIENT
  Age: 70 Year
  Sex: Female

DRUGS (9)
  1. ADVAIR DISKUS 100/50 [Suspect]
     Indication: ASTHMA
     Dosage: 1PUFF TWICE PER DAY
     Route: 055
     Dates: start: 20031209
  2. AVAPRO [Concomitant]
  3. PREMARIN [Concomitant]
  4. HYDROCHLOROTHIAZIDE [Concomitant]
  5. BENZONATATE [Concomitant]
  6. SPIRONOLACTONE [Concomitant]
  7. VITAMIN E [Concomitant]
  8. CALCIUM [Concomitant]
  9. INSULIN [Concomitant]

REACTIONS (2)
  - DRUG INEFFECTIVE [None]
  - DYSPNOEA [None]
